FAERS Safety Report 8345935-2 (Version None)
Quarter: 2012Q2

REPORT INFORMATION
  Report Type: 
  Country: None (occurrence: None)
  Receive Date: 20120507
  Receipt Date: 20120424
  Transmission Date: 20120825
  Serious: Yes (Other)
  Sender: FDA-Public Use
  Company Number: DSA_48589_2011

PATIENT
  Age: 66 Year
  Sex: Female

DRUGS (3)
  1. ISOSORBIDE DINITRATE [Suspect]
     Indication: IMAGING PROCEDURE
     Dosage: (0.3 MG 1X INTRA-ARTERIAL)
     Route: 013
     Dates: start: 20111212, end: 20111212
  2. HEPARIN SODIUM [Suspect]
     Indication: IMAGING PROCEDURE
     Dosage: (3000 IU 1X INTRA-ARTERIAL)
     Route: 013
     Dates: start: 20111212, end: 20111212
  3. DILTIAZEM [Suspect]
     Indication: IMAGING PROCEDURE
     Dosage: (25 MG 1X INTRA-ARTERIAL)
     Route: 013
     Dates: start: 20111212, end: 20111212

REACTIONS (3)
  - INJECTION SITE ERYTHEMA [None]
  - WRONG TECHNIQUE IN DRUG USAGE PROCESS [None]
  - INJECTION SITE INFLAMMATION [None]
